FAERS Safety Report 4511448-9 (Version None)
Quarter: 2004Q4

REPORT INFORMATION
  Report Type: 
  Country: None (occurrence: None)
  Receive Date: 20041129
  Receipt Date: 20040813
  Transmission Date: 20050328
  Serious: No
  Sender: FDA-Public Use
  Company Number: US-BRISTOL-MYERS SQUIBB COMPANY-12671368

PATIENT
  Age: 13 Year
  Sex: Male
  Weight: 48 kg

DRUGS (3)
  1. ABILIFY [Suspect]
     Route: 048
     Dates: start: 20040809
  2. CELEXA [Concomitant]
  3. ZANTAC [Concomitant]

REACTIONS (1)
  - FATIGUE [None]
